FAERS Safety Report 5081027-6 (Version None)
Quarter: 2006Q3

REPORT INFORMATION
  Report Type: 
  Country: None (occurrence: None)
  Receive Date: 20060810
  Receipt Date: 20060731
  Transmission Date: 20061208
  Serious: Yes (Hospitalization)
  Sender: FDA-Public Use
  Company Number: 2006093848

PATIENT
  Age: 44 Year
  Sex: Female

DRUGS (10)
  1. ZOLOFT [Suspect]
     Indication: ANXIETY
     Dosage: 25 MG (25 MG, 1 IN 1 D), ORAL
     Route: 048
  2. ZOLOFT [Suspect]
     Indication: DEPRESSION
     Dosage: 25 MG (25 MG, 1 IN 1 D), ORAL
     Route: 048
  3. ZOLOFT [Suspect]
     Indication: PANIC REACTION
     Dosage: 25 MG (25 MG, 1 IN 1 D), ORAL
     Route: 048
  4. ACETYLSALICYLIC ACID SRT [Suspect]
     Indication: AORTIC ANEURYSM
     Dosage: 75 MG (75 MG, 1 IN 1 D), ORAL
     Route: 048
     Dates: start: 20050101, end: 20051227
  5. ANAFRANIL [Suspect]
     Indication: ANXIETY
     Dosage: 50 MG (1 D), ORAL
     Route: 048
  6. ANAFRANIL [Suspect]
     Indication: DEPRESSION
     Dosage: 50 MG (1 D), ORAL
     Route: 048
  7. ANAFRANIL [Suspect]
     Indication: PANIC DISORDER
     Dosage: 50 MG (1 D), ORAL
     Route: 048
  8. METOPROLOL TARTRATE [Concomitant]
  9. SIMVASTATIN [Concomitant]
  10. VALPROATE SODIUM [Concomitant]

REACTIONS (2)
  - FATIGUE [None]
  - SUBDURAL HAEMATOMA [None]
